FAERS Safety Report 9107398 (Version 2)
Quarter: 2013Q2

REPORT INFORMATION
  Report Type: Spontaneous
  Country: FR (occurrence: FR)
  Receive Date: 20130221
  Receipt Date: 20130405
  Transmission Date: 20140414
  Serious: Yes (Other)
  Sender: FDA-Public Use
  Company Number: FR-JNJFOC-20130206700

PATIENT
  Sex: Male
  Weight: 98 kg

DRUGS (3)
  1. STELARA [Suspect]
     Indication: PRODUCT USED FOR UNKNOWN INDICATION
     Route: 058
     Dates: start: 201204
  2. FLECAINE [Concomitant]
     Route: 065
  3. ISOPTINE [Concomitant]
     Route: 065

REACTIONS (2)
  - Diabetes mellitus [Not Recovered/Not Resolved]
  - Dyslipidaemia [Unknown]
